FAERS Safety Report 19862931 (Version 4)
Quarter: 2022Q1

REPORT INFORMATION
  Report Type: Spontaneous
  Country: NL (occurrence: NL)
  Receive Date: 20210921
  Receipt Date: 20220217
  Transmission Date: 20220423
  Serious: Yes (Life-Threatening, Hospitalization, Disabling, Other)
  Sender: FDA-Public Use
  Company Number: NL-ACCORD-238122

PATIENT
  Age: 67 Year
  Sex: Male
  Weight: 98.1 kg

DRUGS (21)
  1. CARBOPLATIN [Suspect]
     Active Substance: CARBOPLATIN
     Indication: Product used for unknown indication
     Dosage: 5 AUC, 1Q3W;
     Route: 042
     Dates: start: 20210803, end: 20210803
  2. RITUXIMAB [Suspect]
     Active Substance: RITUXIMAB
     Indication: Product used for unknown indication
     Dosage: 1Q3W
     Route: 042
     Dates: start: 20210802, end: 20210802
  3. DEXAMETHASONE [Suspect]
     Active Substance: DEXAMETHASONE
     Indication: Product used for unknown indication
     Route: 065
  4. CYTARABINE [Suspect]
     Active Substance: CYTARABINE
     Indication: Product used for unknown indication
     Dosage: 1Q3W
     Route: 042
     Dates: start: 20210803, end: 20210803
  5. CYTARABINE [Suspect]
     Active Substance: CYTARABINE
     Dosage: 1Q3W
     Route: 042
     Dates: start: 20210803, end: 20210804
  6. EPCORITAMAB [Suspect]
     Active Substance: EPCORITAMAB
     Indication: Product used for unknown indication
     Dosage: PRIMING DOSE: 0.8 MILLIGRAM, SINGLE
     Route: 058
     Dates: start: 20210809, end: 20210809
  7. EPCORITAMAB [Suspect]
     Active Substance: EPCORITAMAB
     Dosage: PRIMING DOSE: 0.16 MILLIGRAM, SINGLE
     Route: 058
     Dates: start: 20210802, end: 20210802
  8. ACETAMINOPHEN [Concomitant]
     Active Substance: ACETAMINOPHEN
     Indication: Product used for unknown indication
     Route: 065
     Dates: start: 20210809, end: 20210809
  9. ACETAMINOPHEN [Concomitant]
     Active Substance: ACETAMINOPHEN
     Route: 065
     Dates: start: 20210802, end: 20210809
  10. ONDANSETRON [Concomitant]
     Active Substance: ONDANSETRON
     Indication: Product used for unknown indication
     Route: 065
     Dates: start: 20210802, end: 20210805
  11. MAGNESIUM SULFATE [Concomitant]
     Active Substance: MAGNESIUM SULFATE
     Indication: Product used for unknown indication
     Route: 065
     Dates: start: 20210802, end: 20210804
  12. RASBURICASE [Concomitant]
     Active Substance: RASBURICASE
     Indication: Product used for unknown indication
     Route: 065
     Dates: start: 20210802, end: 20210804
  13. PREDNISOLONE [Concomitant]
     Active Substance: PREDNISOLONE
     Indication: Product used for unknown indication
     Route: 065
     Dates: start: 20210802, end: 20210818
  14. PREDNISOLONE [Concomitant]
     Active Substance: PREDNISOLONE
     Route: 042
     Dates: start: 20210802
  15. PREDNISOLONE [Concomitant]
     Active Substance: PREDNISOLONE
     Route: 048
     Dates: start: 20210809
  16. PREDNISOLONE [Concomitant]
     Active Substance: PREDNISOLONE
     Route: 042
     Dates: start: 20190816, end: 20190819
  17. PREDNISOLONE [Concomitant]
     Active Substance: PREDNISOLONE
     Route: 042
     Dates: start: 20210810, end: 20210812
  18. DEXAMETHASONE [Concomitant]
     Active Substance: DEXAMETHASONE
     Indication: Product used for unknown indication
     Dosage: QD
     Route: 065
     Dates: start: 20210802, end: 20210805
  19. CLEMASTINE [Concomitant]
     Active Substance: CLEMASTINE
     Indication: Product used for unknown indication
     Route: 065
     Dates: start: 20210809, end: 20210809
  20. CLEMASTINE [Concomitant]
     Active Substance: CLEMASTINE
     Route: 065
     Dates: start: 20210802, end: 20210809
  21. HYPROMELLOSE PHTHALATE [Concomitant]
     Active Substance: HYPROMELLOSE PHTHALATE
     Indication: Product used for unknown indication
     Route: 065
     Dates: start: 20210803, end: 20210805

REACTIONS (3)
  - Quadriparesis [Not Recovered/Not Resolved]
  - Guillain-Barre syndrome [Recovering/Resolving]
  - Respiratory failure [Unknown]

NARRATIVE: CASE EVENT DATE: 20210810
